FAERS Safety Report 4728595-9 (Version None)
Quarter: 2005Q3

REPORT INFORMATION
  Report Type: 
  Country: None (occurrence: None)
  Receive Date: 20050729
  Receipt Date: 20050721
  Transmission Date: 20060218
  Serious: Yes (Other)
  Sender: FDA-Public Use
  Company Number: PHBS2005IT10490

PATIENT
  Age: 31 Year
  Sex: Female

DRUGS (2)
  1. ESTROGEN NOS [Suspect]
     Indication: MENORRHAGIA
  2. IMATINIB [Suspect]
     Indication: CHRONIC MYELOID LEUKAEMIA
     Dosage: 400 MG/D
     Route: 048

REACTIONS (6)
  - ABDOMINAL PAIN [None]
  - BLOOD ALKALINE PHOSPHATASE INCREASED [None]
  - CHOLELITHIASIS [None]
  - DRUG INTERACTION [None]
  - GALLBLADDER DISORDER [None]
  - NAUSEA [None]
